FAERS Safety Report 18972440 (Version 3)
Quarter: 2022Q1

REPORT INFORMATION
  Report Type: Spontaneous
  Country: GB (occurrence: GB)
  Receive Date: 20210305
  Receipt Date: 20220328
  Transmission Date: 20220423
  Serious: Yes (Death, Hospitalization, Other)
  Sender: FDA-Public Use
  Company Number: GB-ROCHE-1745230

PATIENT
  Age: 67 Year
  Sex: Female

DRUGS (36)
  1. PACLITAXEL [Suspect]
     Active Substance: PACLITAXEL
     Indication: Breast cancer metastatic
     Dosage: 141 MILLIGRAM, QMO
     Route: 042
     Dates: start: 20151124, end: 20151221
  2. PACLITAXEL [Suspect]
     Active Substance: PACLITAXEL
     Indication: HER2 positive breast cancer
     Dosage: 141 MILLIGRAM
     Route: 042
     Dates: start: 20161122
  3. PACLITAXEL [Suspect]
     Active Substance: PACLITAXEL
     Dosage: UNK
     Route: 065
     Dates: start: 20161124
  4. PACLITAXEL [Suspect]
     Active Substance: PACLITAXEL
     Dosage: 141 MILLIGRAM
     Route: 042
     Dates: start: 20151124, end: 20151221
  5. HYALURONIDASE [Suspect]
     Active Substance: HYALURONIDASE
     Indication: HER2 positive breast cancer
     Dosage: 600 MILLIGRAM, Q3WK
     Route: 058
     Dates: start: 20160531
  6. HYALURONIDASE [Suspect]
     Active Substance: HYALURONIDASE
     Indication: Product used for unknown indication
     Dosage: 600 UNK
     Route: 058
     Dates: start: 20151124
  7. HYALURONIDASE [Suspect]
     Active Substance: HYALURONIDASE
     Indication: Breast cancer metastatic
     Dosage: 600 MILLIGRAM, Q3WK
     Route: 058
     Dates: start: 20151124, end: 20151221
  8. TAMOXIFEN [Suspect]
     Active Substance: TAMOXIFEN
     Indication: Breast cancer metastatic
     Dosage: 600 MG?CUMULATIVE DOSE TO FIRST REACTION: 440 MG
     Route: 048
     Dates: start: 20160712, end: 20160802
  9. TAMOXIFEN [Suspect]
     Active Substance: TAMOXIFEN
     Indication: HER2 positive breast cancer
     Dosage: 600 MILLIGRAM
     Route: 048
  10. TAMOXIFEN [Suspect]
     Active Substance: TAMOXIFEN
     Dosage: 600 MILLIGRAM, Q3WK?CUMULATIVE DOSE TO FIRST REACTION: 440 MG
     Route: 048
  11. TAMOXIFEN [Suspect]
     Active Substance: TAMOXIFEN
     Dosage: CUMULATIVE DOSE TO FIRST REACTION: 440 MG
  12. TRASTUZUMAB [Suspect]
     Active Substance: TRASTUZUMAB
     Indication: HER2 positive breast cancer
     Dosage: 600 MILLIGRAM, Q3WK?CUMULATIVE DOSE TO FIRST REACTION: 52828.57 MG
     Route: 058
     Dates: start: 20151124, end: 20151221
  13. TRASTUZUMAB [Suspect]
     Active Substance: TRASTUZUMAB
     Indication: Breast cancer metastatic
     Dosage: 600 MILLIGRAM, Q3WK?CUMULATIVE DOSE TO FIRST REACTION: 47429.76 MG
     Route: 058
     Dates: start: 20160531, end: 20161115
  14. ADALIMUMAB [Suspect]
     Active Substance: ADALIMUMAB
     Indication: Product used for unknown indication
     Dosage: 40 MILLIGRAM, Q2WK
     Route: 058
     Dates: start: 20151124
  15. CAPECITABINE [Suspect]
     Active Substance: CAPECITABINE
     Indication: HER2 positive breast cancer
     Dosage: 1000 MILLIGRAM, EVERY 4 DAYS
     Route: 048
     Dates: start: 20161122, end: 20161213
  16. CAPECITABINE [Suspect]
     Active Substance: CAPECITABINE
     Indication: Breast cancer metastatic
     Dosage: 1300 MILLIGRAM, 2X/DAY
     Route: 048
     Dates: start: 20161213, end: 20161216
  17. CAPECITABINE [Suspect]
     Active Substance: CAPECITABINE
     Dosage: 1500 MILLIGRAM
     Route: 048
     Dates: start: 20161122, end: 20161213
  18. CAPECITABINE [Suspect]
     Active Substance: CAPECITABINE
     Dosage: 1300 MILLIGRAM, BID
     Route: 048
     Dates: start: 20161213, end: 20161216
  19. EXEMESTANE [Suspect]
     Active Substance: EXEMESTANE
     Indication: Breast cancer metastatic
     Dosage: 25 MILLIGRAM, QD
     Route: 048
     Dates: start: 20160531, end: 20160610
  20. EXEMESTANE [Suspect]
     Active Substance: EXEMESTANE
     Indication: HER2 positive breast cancer
     Dosage: UNK, QD
     Route: 065
     Dates: start: 20160712
  21. TAMOXIFEN CITRATE [Suspect]
     Active Substance: TAMOXIFEN CITRATE
     Indication: Breast cancer metastatic
     Dosage: 20 MILLIGRAM, QD ?CUMULATIVE DOSE TO FIRST REACTION: 32360.834 MG
     Route: 048
     Dates: start: 20160712, end: 20160802
  22. TAMOXIFEN CITRATE [Suspect]
     Active Substance: TAMOXIFEN CITRATE
     Indication: HER2 positive breast cancer
     Dosage: 600 MILLIGRAM, Q3WK
     Route: 048
  23. HYALURONIDASE (HUMAN RECOMBINANT) [Suspect]
     Active Substance: HYALURONIDASE (HUMAN RECOMBINANT)
     Indication: HER2 positive breast cancer
     Dosage: 600 MG, EVERY 3 WEEKS
     Route: 058
     Dates: start: 20160531, end: 20161115
  24. HYALURONIDASE (HUMAN RECOMBINANT) [Suspect]
     Active Substance: HYALURONIDASE (HUMAN RECOMBINANT)
     Indication: Breast cancer metastatic
     Dosage: 600 MILLIGRAM, Q3WK
     Route: 058
     Dates: start: 20160531
  25. HYALURONIDASE (HUMAN RECOMBINANT) [Suspect]
     Active Substance: HYALURONIDASE (HUMAN RECOMBINANT)
     Dosage: 600 MG, EVERY 3 WEEKS
     Route: 058
     Dates: start: 20151124, end: 20151221
  26. HYALURONIDASE (HUMAN RECOMBINANT) [Suspect]
     Active Substance: HYALURONIDASE (HUMAN RECOMBINANT)
     Indication: Product used for unknown indication
     Dosage: UNK, Q3WK
     Route: 058
     Dates: start: 20151124, end: 20151221
  27. HYALURONIDASE (HUMAN RECOMBINANT) [Suspect]
     Active Substance: HYALURONIDASE (HUMAN RECOMBINANT)
     Dosage: 600 MILLIGRAM, Q3WK?CUMULATIVE DOSE TO FIRST REACTION: 47429.76 MG
     Route: 058
     Dates: start: 20160531, end: 20161115
  28. HYALURONIDASE (HUMAN RECOMBINANT) [Suspect]
     Active Substance: HYALURONIDASE (HUMAN RECOMBINANT)
     Dosage: UNK, Q3WK
     Route: 058
     Dates: start: 20160531
  29. CALCIUM CARBONATE\CHOLECALCIFEROL [Concomitant]
     Active Substance: CALCIUM CARBONATE\CHOLECALCIFEROL
     Indication: Product used for unknown indication
     Dosage: 1.5 DOSAGE FORM, QD?CUMULATIVE DOSE TO FIRST REACTION:	5472.0 {DF}
     Route: 048
     Dates: start: 20101221, end: 201511
  30. CALCIUM CARBONATE\CHOLECALCIFEROL [Concomitant]
     Active Substance: CALCIUM CARBONATE\CHOLECALCIFEROL
     Dosage: 1.5 GRAM, QD?CUMULATIVE DOSE TO FIRST REACTION: 5472.0 G
     Route: 048
     Dates: start: 20101221, end: 201511
  31. ENOXAPARIN [Concomitant]
     Active Substance: ENOXAPARIN
     Indication: Thrombosis prophylaxis
     Dosage: 20 MG, 1X/DAY
     Route: 058
     Dates: start: 20160106
  32. ENOXAPARIN [Concomitant]
     Active Substance: ENOXAPARIN
     Indication: Embolism venous
     Dosage: 20 MG, 1X/DAY
     Route: 058
     Dates: start: 20160104, end: 20160106
  33. ENOXAPARIN [Concomitant]
     Active Substance: ENOXAPARIN
  34. OMEPRAZOLE [Concomitant]
     Active Substance: OMEPRAZOLE
     Indication: Product used for unknown indication
     Dosage: 20 MILLIGRAM, QD
     Route: 048
     Dates: start: 20170530
  35. OMEPRAZOLE [Concomitant]
     Active Substance: OMEPRAZOLE
     Dosage: 1 DOSAGE FORM, QD
     Route: 048
  36. OMEPRAZOLE [Concomitant]
     Active Substance: OMEPRAZOLE
     Dosage: 20 MG FROM 30-MAY-2017
     Route: 048
     Dates: end: 20170530

REACTIONS (6)
  - Death [Fatal]
  - Cerebral haemorrhage [Recovered/Resolved]
  - Balance disorder [Not Recovered/Not Resolved]
  - Sensory loss [Not Recovered/Not Resolved]
  - Asthenia [Not Recovered/Not Resolved]
  - Hypertension [Recovered/Resolved with Sequelae]

NARRATIVE: CASE EVENT DATE: 20201216
